FAERS Safety Report 10159814 (Version 1)
Quarter: 2014Q2

REPORT INFORMATION
  Report Type: Spontaneous
  Country: US (occurrence: US)
  Receive Date: 20140508
  Receipt Date: 20140508
  Transmission Date: 20141212
  Serious: No
  Sender: FDA-Public Use
  Company Number: US-BAYER-2014-055443

PATIENT
  Age: 64 Year
  Sex: Male
  Weight: 126.98 kg

DRUGS (2)
  1. BAYER GENUINE ASPIRIN ORIGINAL STRENGTH [Suspect]
     Dosage: 5 DF, UNK
     Route: 048
     Dates: start: 1968, end: 201402
  2. CENTRUM SILVER [Concomitant]

REACTIONS (2)
  - Intentional product misuse [None]
  - Therapeutic response changed [Recovered/Resolved]
